FAERS Safety Report 25880572 (Version 1)
Quarter: 2025Q4

REPORT INFORMATION
  Report Type: Report from Study
  Country: US (occurrence: US)
  Receive Date: 20251004
  Receipt Date: 20251004
  Transmission Date: 20260117
  Serious: No
  Sender: SANDOZ
  Company Number: US-SANDOZ-SDZ2025US070208

PATIENT
  Sex: Female

DRUGS (2)
  1. HYRIMOZ [Suspect]
     Active Substance: ADALIMUMAB-ADAZ
     Indication: Product used for unknown indication
     Dosage: 40 MG, Q2W ONCE EVERY TWO WEEKS
     Route: 065
     Dates: start: 20250801, end: 20250912
  2. HYRIMOZ [Suspect]
     Active Substance: ADALIMUMAB-ADAZ
     Indication: Product used for unknown indication
     Dosage: 40 MG, Q2W ONCE EVERY TWO WEEKS
     Route: 065
     Dates: start: 20250801, end: 20250912

REACTIONS (2)
  - Device use issue [Unknown]
  - Device malfunction [Unknown]
